FAERS Safety Report 5021260-2 (Version None)
Quarter: 2006Q2

REPORT INFORMATION
  Report Type: 
  Country: None (occurrence: None)
  Receive Date: 20060605
  Receipt Date: 20060523
  Transmission Date: 20061013
  Serious: Yes (Life-Threatening, Hospitalization, Other)
  Sender: FDA-Public Use
  Company Number: 2006066343

PATIENT
  Age: 59 Year
  Sex: Female

DRUGS (14)
  1. GEODON [Suspect]
     Indication: DELUSION
     Dosage: 20 MG (20 MG, 1 IN 1 D) ORAL
     Route: 048
     Dates: start: 20060201, end: 20060503
  2. GEODON [Suspect]
     Indication: HALLUCINATION
     Dosage: 20 MG (20 MG, 1 IN 1 D) ORAL
     Route: 048
     Dates: start: 20060201, end: 20060503
  3. GEODON [Suspect]
     Indication: SCHIZOAFFECTIVE DISORDER
     Dosage: 20 MG (20 MG, 1 IN 1 D) ORAL
     Route: 048
     Dates: start: 20060201, end: 20060503
  4. ZITHROMAX [Suspect]
     Indication: LUNG INFILTRATION
     Dates: start: 20060501
  5. SEROQUEL [Concomitant]
  6. LEXAPRO [Concomitant]
  7. TEMAZEPAM [Concomitant]
  8. KLONOPIN [Concomitant]
  9. METFORMIN HCL [Concomitant]
  10. LISINOPRIL [Concomitant]
  11. NEXIUM [Concomitant]
  12. ZOCOR [Concomitant]
  13. ZETIA [Concomitant]
  14. IBUPROFEN [Concomitant]

REACTIONS (16)
  - ALANINE AMINOTRANSFERASE INCREASED [None]
  - ASPARTATE AMINOTRANSFERASE INCREASED [None]
  - BLOOD CREATINE PHOSPHOKINASE INCREASED [None]
  - CONFUSIONAL STATE [None]
  - DIALYSIS [None]
  - DRUG INTERACTION [None]
  - ELECTROCARDIOGRAM QT CORRECTED INTERVAL PROLONGED [None]
  - MYOCARDIAL INFARCTION [None]
  - MYOGLOBINURIA [None]
  - NEUROLEPTIC MALIGNANT SYNDROME [None]
  - PNEUMONIA [None]
  - PYREXIA [None]
  - RENAL FAILURE [None]
  - RHABDOMYOLYSIS [None]
  - TROPONIN INCREASED [None]
  - WEIGHT DECREASED [None]
